FAERS Safety Report 21018623 (Version 1)
Quarter: 2022Q2

REPORT INFORMATION
  Report Type: Spontaneous
  Country: US (occurrence: US)
  Receive Date: 20220628
  Receipt Date: 20220628
  Transmission Date: 20220721
  Serious: Yes (Other)
  Sender: FDA-Public Use
  Company Number: US-ALLERGAN-2220685US

PATIENT
  Sex: Female

DRUGS (1)
  1. INFED [Suspect]
     Active Substance: IRON DEXTRAN
     Indication: Iron deficiency
     Dosage: UNK
     Dates: start: 2016

REACTIONS (4)
  - Multiple organ dysfunction syndrome [Unknown]
  - Renal impairment [Unknown]
  - Neuralgia [Unknown]
  - Arthralgia [Unknown]
